FAERS Safety Report 4446340-1 (Version None)
Quarter: 2004Q3

REPORT INFORMATION
  Report Type: 
  Country: None (occurrence: None)
  Receive Date: 20040902
  Receipt Date: 20040806
  Transmission Date: 20050211
  Serious: Yes (Hospitalization)
  Sender: FDA-Public Use
  Company Number: WAES 0311CRI00004

PATIENT
  Age: 72 Year
  Sex: Female

DRUGS (14)
  1. TAB ETORICOXIB 90 MG [Suspect]
     Indication: RHEUMATOID ARTHRITIS
     Dosage: SEE IMAGE
     Dates: start: 20030724, end: 20031124
  2. FOXAMAX [Concomitant]
  3. ACETAMINOPHEN [Concomitant]
  4. AMLODIPINE MEALEATE [Concomitant]
  5. BROMAZEPAM [Concomitant]
  6. CIPROFLOXACIN [Concomitant]
  7. DIOSMIN (+) HESPERIDIN [Concomitant]
  8. FOLIC ACID [Concomitant]
  9. GLIMEPIRIDE [Concomitant]
  10. INDAPAMIDE [Concomitant]
  11. METHOTREXATE [Concomitant]
  12. OMEPRAZOLE [Concomitant]
  13. PLANTAGO SEED (+) PSYLLIUM HUSK [Concomitant]
  14. PREDNISONE [Concomitant]

REACTIONS (5)
  - DUODENITIS [None]
  - GASTRITIS [None]
  - GASTROOESOPHAGEAL REFLUX DISEASE [None]
  - OESOPHAGEAL CANDIDIASIS [None]
  - REFLUX OESOPHAGITIS [None]
